FAERS Safety Report 6409440-2 (Version None)
Quarter: 2009Q4

REPORT INFORMATION
  Report Type: 
  Country: None (occurrence: None)
  Receive Date: 20091019
  Receipt Date: 20091019
  Transmission Date: 20100525
  Serious: Yes (Other)
  Sender: FDA-Public Use
  Company Number: None

PATIENT
  Age: 28 Year
  Sex: Female
  Weight: 54.4316 kg

DRUGS (2)
  1. YASMIN [Suspect]
     Indication: CONTRACEPTION
     Dosage: 3 MG 1 A DAY PO AT LEAST 5 YEARS
     Route: 048
  2. YASMIN [Suspect]
     Indication: MENSTRUATION IRREGULAR
     Dosage: 3 MG 1 A DAY PO AT LEAST 5 YEARS
     Route: 048

REACTIONS (1)
  - CHOLECYSTOSTOMY [None]
